FAERS Safety Report 12154253 (Version 1)
Quarter: 2016Q1

REPORT INFORMATION
  Report Type: Spontaneous
  Country: US (occurrence: US)
  Receive Date: 20160307
  Receipt Date: 20160307
  Transmission Date: 20160526
  Serious: No
  Sender: FDA-Public Use
  Company Number: US-MYLANLABS-2015M1041783

PATIENT
  Sex: Female

DRUGS (1)
  1. CAPECITABINE TABLETS USP [Suspect]
     Active Substance: CAPECITABINE
     Dosage: 2000 MG, BID, FOR 14 DAYS, THEN OFF FOR 7 DAYS

REACTIONS (2)
  - Foot deformity [Unknown]
  - Ulcer [Unknown]
